FAERS Safety Report 5838396-6 (Version None)
Quarter: 2008Q3

REPORT INFORMATION
  Report Type: 
  Country: None (occurrence: None)
  Receive Date: 20080806
  Receipt Date: 20080724
  Transmission Date: 20090109
  Serious: Yes (Hospitalization)
  Sender: FDA-Public Use
  Company Number: AZAUS200800236

PATIENT
  Age: 63 Year
  Sex: Female
  Weight: 62 kg

DRUGS (6)
  1. VIDAZA [Suspect]
     Indication: ACUTE MYELOID LEUKAEMIA
     Dosage: (85 MG/M2,DAILY X 5 DAYS)  SUBCUTANEOUS
     Route: 058
     Dates: start: 20080623, end: 20080627
  2. TYLENOL ES (PARACETAMOL) [Concomitant]
  3. ES (PARACETAMOL) [Concomitant]
  4. KLONOPIN(CLONAZAM) [Concomitant]
  5. ZOFRAN [Concomitant]
  6. KYTRIL [Concomitant]

REACTIONS (5)
  - CLOSTRIDIUM DIFFICILE COLITIS [None]
  - DEHYDRATION [None]
  - HYPOALBUMINAEMIA [None]
  - HYPOMAGNESAEMIA [None]
  - METABOLIC ACIDOSIS [None]
